FAERS Safety Report 22017635 (Version 2)
Quarter: 2023Q1

REPORT INFORMATION
  Report Type: Spontaneous
  Country: DE (occurrence: DE)
  Receive Date: 20230221
  Receipt Date: 20230303
  Transmission Date: 20230417
  Serious: Yes (Other)
  Sender: FDA-Public Use
  Company Number: DE-Gedeon Richter Plc.-2023_GR_001228

PATIENT
  Sex: Female

DRUGS (2)
  1. ESTRADIOL\NORETHINDRONE ACETATE\RELUGOLIX [Suspect]
     Active Substance: ESTRADIOL\NORETHINDRONE ACETATE\RELUGOLIX
     Indication: Uterine leiomyoma
     Dosage: UNK
     Route: 048
     Dates: start: 20230131, end: 20230203
  2. TRANEXAMIC ACID [Concomitant]
     Active Substance: TRANEXAMIC ACID
     Indication: Uterine leiomyoma
     Dosage: 2-2-2 (6X DAILY)
     Route: 065
     Dates: start: 20230131

REACTIONS (1)
  - Thrombosis [Unknown]

NARRATIVE: CASE EVENT DATE: 20230203
